FAERS Safety Report 11718770 (Version 1)
Quarter: 2015Q4

REPORT INFORMATION
  Report Type: Spontaneous
  Country: US (occurrence: US)
  Receive Date: 20151110
  Receipt Date: 20151110
  Transmission Date: 20160304
  Serious: Yes (Hospitalization, Other)
  Sender: FDA-Public Use
  Company Number: US-GLAXOSMITHKLINE-US2015GSK160021

PATIENT
  Age: 29 Year
  Sex: Female

DRUGS (4)
  1. ESCITALOPRAM [Concomitant]
     Active Substance: ESCITALOPRAM OXALATE
     Dosage: 10 MG, QD
  2. BUPROPION SR [Suspect]
     Active Substance: BUPROPION
     Indication: DEPRESSION
     Dosage: 150 MG, 1D
  3. ESCITALOPRAM [Concomitant]
     Active Substance: ESCITALOPRAM OXALATE
     Indication: DEPRESSION
     Dosage: 20 MG, QD
  4. BUPROPION SR [Suspect]
     Active Substance: BUPROPION
     Dosage: 150 MG, BID

REACTIONS (16)
  - Lip swelling [Recovered/Resolved]
  - Anaphylactic reaction [Recovered/Resolved]
  - Pruritus [Recovered/Resolved]
  - Chills [Recovered/Resolved]
  - Metabolic acidosis [Recovered/Resolved]
  - Urticaria [Recovered/Resolved]
  - Rash generalised [Recovered/Resolved]
  - Dysphagia [Recovered/Resolved]
  - Chest discomfort [Recovered/Resolved]
  - Macroglossia [Recovered/Resolved]
  - Tachycardia [Recovered/Resolved]
  - Dyspnoea [Recovered/Resolved]
  - Leukocytosis [Recovered/Resolved]
  - Oropharyngeal swelling [Recovered/Resolved]
  - Hypotension [Recovered/Resolved]
  - Swollen tongue [Recovered/Resolved]
